FAERS Safety Report 23079548 (Version 1)
Quarter: 2023Q4

REPORT INFORMATION
  Report Type: Spontaneous
  Country: US (occurrence: None)
  Receive Date: 20231018
  Receipt Date: 20231018
  Transmission Date: 20240110
  Serious: Yes (Death, Hospitalization, Other)
  Sender: FDA-Public Use
  Company Number: US-Unichem Pharmaceuticals (USA) Inc-UCM202310-001300

PATIENT
  Age: 42 Year
  Sex: Female

DRUGS (1)
  1. AMLODIPINE [Suspect]
     Active Substance: AMLODIPINE BESYLATE
     Indication: Product used for unknown indication
     Dosage: INGESTING 52 PILLS OF AMLODIPINE 10 MG
     Route: 048

REACTIONS (9)
  - Distributive shock [Unknown]
  - Cardiogenic shock [Unknown]
  - Brain injury [Unknown]
  - Hypokalaemia [Unknown]
  - Lactic acidosis [Unknown]
  - Non-cardiogenic pulmonary oedema [Unknown]
  - Toxicity to various agents [Unknown]
  - Overdose [Unknown]
  - Suicide attempt [Unknown]
